FAERS Safety Report 7883714-0 (Version None)
Quarter: 2011Q4

REPORT INFORMATION
  Report Type: 
  Country: None (occurrence: None)
  Receive Date: 20111031
  Receipt Date: 20111020
  Transmission Date: 20120403
  Serious: Yes (Other)
  Sender: FDA-Public Use
  Company Number: DSJ-2011-22824

PATIENT
  Age: 62 Year
  Sex: Male

DRUGS (3)
  1. BENICAR [Suspect]
     Indication: HYPERTENSION
     Dosage: 20 MG (20 MG, 1 IN 1 D) ,PER ORAL ; 40 MG (40 MG, 1 IN 1 D) ,PER ORAL
     Route: 048
     Dates: start: 20090101, end: 20111019
  2. BENICAR [Suspect]
     Indication: HYPERTENSION
     Dosage: 20 MG (20 MG, 1 IN 1 D) ,PER ORAL ; 40 MG (40 MG, 1 IN 1 D) ,PER ORAL
     Route: 048
     Dates: start: 20111020
  3. CIPROFIBRATE (CIPROFIBRATE) (CIPROFIBRATE) [Concomitant]

REACTIONS (2)
  - CHOLELITHIASIS [None]
  - DRUG INEFFECTIVE [None]
